FAERS Safety Report 9511446 (Version 1)
Quarter: 2013Q3

REPORT INFORMATION
  Report Type: Spontaneous
  Country: GB (occurrence: GB)
  Receive Date: 20130910
  Receipt Date: 20130910
  Transmission Date: 20140515
  Serious: Yes (Other)
  Sender: FDA-Public Use
  Company Number: GB-BRISTOL-MYERS SQUIBB COMPANY-19348259

PATIENT
  Age: 48 Year
  Sex: Male

DRUGS (20)
  1. ARIPIPRAZOLE [Suspect]
     Dates: start: 20130620
  2. ANGITIL [Concomitant]
  3. ASPIRIN [Concomitant]
  4. ATORVASTATIN [Concomitant]
  5. CHLORHEXIDINE [Concomitant]
  6. FLUTICASONE [Concomitant]
     Route: 055
  7. GABAPENTINE [Concomitant]
  8. IBUPROFEN [Concomitant]
  9. LAMOTRIGINE [Concomitant]
  10. MOMETASONE [Concomitant]
  11. MOMETASONE [Concomitant]
  12. MONTELUKAST [Concomitant]
  13. NYSTATIN [Concomitant]
  14. OMEPRAZOLE [Concomitant]
  15. SALBUTAMOL [Concomitant]
     Route: 055
  16. SALMETEROL [Concomitant]
  17. TOLTERODINE [Concomitant]
  18. TRAMADOL [Concomitant]
  19. ZOPICLONE [Concomitant]
  20. ANGITIL [Concomitant]

REACTIONS (2)
  - VIIth nerve paralysis [Unknown]
  - Somnolence [Unknown]
